FAERS Safety Report 24684020 (Version 2)
Quarter: 2025Q1

REPORT INFORMATION
  Report Type: Report from Study
  Country: US (occurrence: US)
  Receive Date: 20241202
  Receipt Date: 20250226
  Transmission Date: 20250409
  Serious: Yes (Hospitalization, Other)
  Sender: TAKEDA
  Company Number: US-TAKEDA-2024TUS030337

PATIENT
  Sex: Female

DRUGS (18)
  1. IXAZOMIB [Suspect]
     Active Substance: IXAZOMIB
     Indication: Plasma cell myeloma
  2. DEXAMETHASONE [Suspect]
     Active Substance: DEXAMETHASONE
  3. INSULIN GLARGINE [Concomitant]
     Active Substance: INSULIN GLARGINE
  4. NOVOLOG [Concomitant]
     Active Substance: INSULIN ASPART
  5. ACYCLOVIR [Concomitant]
     Active Substance: ACYCLOVIR
  6. AMLODIPINE [Concomitant]
     Active Substance: AMLODIPINE BESYLATE
  7. ASPIRIN [Concomitant]
     Active Substance: ASPIRIN
  8. VITAMIN B12 [Concomitant]
     Active Substance: CYANOCOBALAMIN
  9. CLOBETASOL [Concomitant]
     Active Substance: CLOBETASOL
  10. GLIPIZIDE [Concomitant]
     Active Substance: GLIPIZIDE
  11. HYDROCHLOROTHIAZIDE [Concomitant]
     Active Substance: HYDROCHLOROTHIAZIDE
  12. LISINOPRIL [Concomitant]
     Active Substance: LISINOPRIL
  13. METFORMIN [Concomitant]
     Active Substance: METFORMIN HYDROCHLORIDE
  14. OMEPRAZOLE [Concomitant]
     Active Substance: OMEPRAZOLE
  15. ONDANSETRON [Concomitant]
     Active Substance: ONDANSETRON
  16. PRAVASTATIN [Concomitant]
     Active Substance: PRAVASTATIN
  17. TRIAMCINOLONE [Concomitant]
     Active Substance: TRIAMCINOLONE
  18. VITAMIN D [Concomitant]
     Active Substance: VITAMIN D NOS

REACTIONS (7)
  - Perirectal abscess [Recovering/Resolving]
  - Cardiac failure congestive [Recovering/Resolving]
  - Urothelial papilloma [Recovering/Resolving]
  - Fluid retention [Recovering/Resolving]
  - Hypokalaemia [Recovering/Resolving]
  - Fatigue [Recovering/Resolving]
  - Diarrhoea [Unknown]
